FAERS Safety Report 14411896 (Version 1)
Quarter: 2018Q1

REPORT INFORMATION
  Report Type: Spontaneous
  Country: US (occurrence: US)
  Receive Date: 20180117
  Receipt Date: 20180117
  Transmission Date: 20180509
  Serious: Yes (Other)
  Sender: FDA-Public Use
  Company Number: None

PATIENT
  Age: 41 Year
  Sex: Female

DRUGS (3)
  1. ANTIMICROBIAL [Suspect]
     Active Substance: ALCOHOL\CHLOROXYLENOL\TRICLOSAN
     Indication: INFECTION PROPHYLAXIS
     Route: 061
     Dates: start: 20170602, end: 20180117
  2. ANIOSGEL 85 NPC [Suspect]
     Active Substance: ALCOHOL
     Dates: start: 20171012, end: 20171101
  3. DIANEAL LOW CALCIUM PERITONEAL DIALYSIS SOLUTION WITH DEXTROSE [Suspect]
     Active Substance: CALCIUM CHLORIDE\DEXTROSE\MAGNESIUM CHLORIDE\SODIUM CHLORIDE\SODIUM LACTATE
     Indication: END STAGE RENAL DISEASE
     Dosage: OTHER ROUTE:PERITONEAL DIALYSIS?
     Dates: start: 20170817, end: 20170917

REACTIONS (3)
  - Peritoneal dialysis complication [None]
  - Atypical mycobacterium test positive [None]
  - Catheter site abscess [None]

NARRATIVE: CASE EVENT DATE: 20171018
